FAERS Safety Report 24830465 (Version 5)
Quarter: 2025Q2

REPORT INFORMATION
  Report Type: Spontaneous
  Country: US (occurrence: US)
  Receive Date: 20250110
  Receipt Date: 20250505
  Transmission Date: 20250716
  Serious: No
  Sender: PFIZER
  Company Number: US-PFIZER INC-202500005044

PATIENT
  Age: 65 Year
  Sex: Female

DRUGS (1)
  1. TUKYSA [Suspect]
     Active Substance: TUCATINIB
     Dosage: TAKE TWO 150MG TABLETS BY MOUTH TWICE DAILY/150MG, TWO TABLETS TWICE A DAY/300 MG TWICE DAILY
     Route: 048

REACTIONS (5)
  - Brain fog [Unknown]
  - Illness [Unknown]
  - Sleep apnoea syndrome [Unknown]
  - Bradyphrenia [Unknown]
  - Attention deficit hyperactivity disorder [Unknown]

NARRATIVE: CASE EVENT DATE: 20250107
